FAERS Safety Report 16127216 (Version 1)
Quarter: 2019Q1

REPORT INFORMATION
  Report Type: Spontaneous
  Country: ES (occurrence: ES)
  Receive Date: 20190328
  Receipt Date: 20190328
  Transmission Date: 20190418
  Serious: Yes (Other)
  Sender: FDA-Public Use
  Company Number: PHHY2018ES132265

PATIENT
  Age: 64 Year
  Sex: Male

DRUGS (8)
  1. ITRACONAZOLE. [Interacting]
     Active Substance: ITRACONAZOLE
     Indication: PHAEOHYPHOMYCOSIS
     Dosage: 400 MG, QD
     Route: 065
  2. TACROLIMUS. [Interacting]
     Active Substance: TACROLIMUS
     Indication: IMMUNOSUPPRESSANT DRUG THERAPY
  3. MYCOPHENOLATE MOFETIL. [Suspect]
     Active Substance: MYCOPHENOLATE MOFETIL
     Indication: LUNG TRANSPLANT
     Dosage: UNK
     Route: 065
  4. ITRACONAZOLE. [Interacting]
     Active Substance: ITRACONAZOLE
     Indication: ALTERNARIA INFECTION
  5. PREDNISONE. [Interacting]
     Active Substance: PREDNISONE
     Indication: LUNG TRANSPLANT
     Dosage: UNK
     Route: 065
  6. PREDNISONE. [Interacting]
     Active Substance: PREDNISONE
     Indication: IMMUNOSUPPRESSANT DRUG THERAPY
  7. MYCOPHENOLATE MOFETIL. [Interacting]
     Active Substance: MYCOPHENOLATE MOFETIL
     Indication: IMMUNOSUPPRESSANT DRUG THERAPY
  8. TACROLIMUS. [Interacting]
     Active Substance: TACROLIMUS
     Indication: LUNG TRANSPLANT
     Dosage: UNK
     Route: 065

REACTIONS (8)
  - Skin ulcer [Recovered/Resolved]
  - Alternaria infection [Recovered/Resolved]
  - Drug interaction [Unknown]
  - Myopathy [Unknown]
  - Skin plaque [Recovered/Resolved]
  - Lung transplant rejection [Unknown]
  - Fungal skin infection [Recovered/Resolved]
  - Product use in unapproved indication [Unknown]
